FAERS Safety Report 21168465 (Version 3)
Quarter: 2022Q4

REPORT INFORMATION
  Report Type: Spontaneous
  Country: US (occurrence: US)
  Receive Date: 20220803
  Receipt Date: 20221101
  Transmission Date: 20230113
  Serious: No
  Sender: FDA-Public Use
  Company Number: US-BRISTOL-MYERS SQUIBB COMPANY-2022-084401

PATIENT
  Age: 60 Year
  Sex: Male
  Weight: 79.38 kg

DRUGS (3)
  1. REVLIMID [Suspect]
     Active Substance: LENALIDOMIDE
     Indication: Product used for unknown indication
     Dosage: 1 DF :1 CAPSULE?FREQ : FOR 14 DAYS THEN OFF FOR 7 DAYS
     Route: 048
     Dates: start: 20220821
  2. REVLIMID [Suspect]
     Active Substance: LENALIDOMIDE
     Dosage: FREQUENCY:  DAILY 14 DAYS ON THEN 7 DAYS OFF
     Route: 048
  3. REVLIMID [Suspect]
     Active Substance: LENALIDOMIDE
     Dosage: FREQUENCY:  TAKE 1 CAPSULE BY MOUTH EVERY DAY
     Route: 048

REACTIONS (5)
  - Pain in extremity [Unknown]
  - Rash [Recovered/Resolved]
  - Depression [Recovered/Resolved]
  - Off label use [Unknown]
  - Fatigue [Unknown]
